FAERS Safety Report 7212286-9 (Version None)
Quarter: 2011Q1

REPORT INFORMATION
  Report Type: 
  Country: None (occurrence: None)
  Receive Date: 20110106
  Receipt Date: 20101223
  Transmission Date: 20110831
  Serious: Yes (Other)
  Sender: FDA-Public Use
  Company Number: PHHY2010FR89361

PATIENT
  Age: 78 Year
  Sex: Male

DRUGS (12)
  1. LYRICA [Concomitant]
  2. ZYLORIC ^FRESENIUS^ [Concomitant]
  3. NEORECORMON [Concomitant]
     Dosage: UNK
  4. PLAVIX [Concomitant]
  5. ZOLPIDEM [Concomitant]
  6. DILTIAZEM [Concomitant]
  7. TAMSULOSIN [Concomitant]
  8. SIMVASTATIN [Concomitant]
  9. RAMIPRIL [Concomitant]
  10. AMN107 [Suspect]
     Indication: CHRONIC MYELOID LEUKAEMIA
     Dosage: 400 MG, BID
     Dates: start: 20081113
  11. KARDEGIC [Concomitant]
  12. ESOMEPRAZOLE [Concomitant]

REACTIONS (3)
  - DIPLOPIA [None]
  - ATRIAL FIBRILLATION [None]
  - CEREBELLAR HAEMATOMA [None]
